FAERS Safety Report 4355616-8 (Version None)
Quarter: 2004Q2

REPORT INFORMATION
  Report Type: 
  Country: None (occurrence: None)
  Receive Date: 20040505
  Receipt Date: 20040420
  Transmission Date: 20050107
  Serious: Yes (Life-Threatening, Hospitalization)
  Sender: FDA-Public Use
  Company Number: S04-CAN-01880-01

PATIENT
  Sex: Female

DRUGS (3)
  1. CELEXA [Suspect]
     Dates: start: 20020201, end: 20031001
  2. LITHIUM CARBONATE [Concomitant]
  3. VALPROIC ACID [Concomitant]

REACTIONS (10)
  - ABNORMAL BEHAVIOUR [None]
  - BIPOLAR DISORDER [None]
  - DEPRESSION [None]
  - DRUG WITHDRAWAL SYNDROME [None]
  - INSOMNIA [None]
  - MEMORY IMPAIRMENT [None]
  - MENTAL IMPAIRMENT [None]
  - NIGHT SWEATS [None]
  - SENSATION OF BLOOD FLOW [None]
  - SUICIDAL IDEATION [None]
